FAERS Safety Report 7705206-1 (Version None)
Quarter: 2011Q3

REPORT INFORMATION
  Report Type: 
  Country: None (occurrence: None)
  Receive Date: 20110824
  Receipt Date: 20110812
  Transmission Date: 20111222
  Serious: Yes (Other)
  Sender: FDA-Public Use
  Company Number: CA-JNJFOC-20110807215

PATIENT
  Sex: Male
  Weight: 93 kg

DRUGS (7)
  1. REMICADE [Suspect]
     Route: 042
     Dates: start: 20080101
  2. REMICADE [Suspect]
     Indication: CROHN'S DISEASE
     Dosage: WEEK 2 OF INDUCTION THERAPY
     Route: 042
     Dates: start: 20110812
  3. DESLORATADINE [Concomitant]
     Indication: PREMEDICATION
     Route: 048
  4. QUESTRAN [Concomitant]
  5. ENTEROCORT [Concomitant]
     Indication: PROPHYLAXIS
  6. PENTASA [Concomitant]
  7. SOLU-CORTEF [Concomitant]
     Indication: PREMEDICATION
     Route: 042

REACTIONS (5)
  - THROAT TIGHTNESS [None]
  - INFUSION RELATED REACTION [None]
  - PRURITUS GENERALISED [None]
  - OROPHARYNGEAL PAIN [None]
  - TUBERCULOSIS [None]
